FAERS Safety Report 15276200 (Version 3)
Quarter: 2018Q3

REPORT INFORMATION
  Report Type: Spontaneous
  Country: JP (occurrence: JP)
  Receive Date: 20180814
  Receipt Date: 20180925
  Transmission Date: 20181010
  Serious: Yes (Other)
  Sender: FDA-Public Use
  Company Number: PHJP2016JP009125

PATIENT
  Age: 76 Year
  Sex: Female
  Weight: 59 kg

DRUGS (11)
  1. COSENTYX [Suspect]
     Active Substance: SECUKINUMAB
     Dosage: 300 MG, QW
     Route: 058
     Dates: start: 20160414
  2. ALLEGRA [Concomitant]
     Active Substance: FEXOFENADINE HYDROCHLORIDE
     Indication: PRURITUS
     Dosage: 60 MG, UNK
     Route: 048
     Dates: start: 20160421, end: 20160812
  3. COSENTYX [Suspect]
     Active Substance: SECUKINUMAB
     Indication: PUSTULAR PSORIASIS
     Dosage: 300 MG, QW
     Route: 058
     Dates: start: 20160322
  4. COSENTYX [Suspect]
     Active Substance: SECUKINUMAB
     Dosage: 300 MG, QW
     Route: 058
     Dates: start: 20160407
  5. COSENTYX [Suspect]
     Active Substance: SECUKINUMAB
     Dosage: 300 MG, QW
     Route: 058
     Dates: start: 20160421
  6. COSENTYX [Suspect]
     Active Substance: SECUKINUMAB
     Dosage: 300 MG, 4W
     Route: 058
     Dates: start: 20160510
  7. HIRUDOID [Concomitant]
     Active Substance: GLYCOSAMINOGLYCANS
     Indication: PUSTULAR PSORIASIS
     Dosage: UNKNOWN DOSE, ONE TO TIMES A DAY
     Route: 062
     Dates: start: 20180126
  8. COSENTYX [Suspect]
     Active Substance: SECUKINUMAB
     Dosage: 300 MG, QW
     Route: 058
     Dates: start: 20160331
  9. CINAL [Concomitant]
     Active Substance: ASCORBIC ACID\CALCIUM PANTOTHENATE
     Indication: PUSTULAR PSORIASIS
     Dosage: 1 DF, TID
     Route: 048
     Dates: start: 20130508
  10. COSENTYX [Suspect]
     Active Substance: SECUKINUMAB
     Dosage: 300 MG, 4W
     Route: 065
     Dates: start: 20170420
  11. BIOTIN [Concomitant]
     Active Substance: BIOTIN
     Indication: PUSTULAR PSORIASIS
     Dosage: 1 G, TID
     Route: 048
     Dates: start: 20120813

REACTIONS (4)
  - Nasopharyngitis [Recovered/Resolved]
  - Urinary retention [Unknown]
  - Oral candidiasis [Recovered/Resolved]
  - Body tinea [Recovered/Resolved]

NARRATIVE: CASE EVENT DATE: 20160407
